FAERS Safety Report 4937427-5 (Version None)
Quarter: 2006Q1

REPORT INFORMATION
  Report Type: 
  Country: None (occurrence: None)
  Receive Date: 20060302
  Receipt Date: 20060214
  Transmission Date: 20060701
  Serious: Yes (Hospitalization)
  Sender: FDA-Public Use
  Company Number: FR_050606731

PATIENT
  Age: 86 Year
  Sex: Female

DRUGS (11)
  1. FORTEO [Suspect]
     Indication: OSTEOPOROSIS
     Dosage: 20 UG, DAILY (1/D); 20 UG, DAILY (1/D), SUBCUTANEOUS
     Route: 058
     Dates: start: 20050606
  2. FORTEO PEN, 250MCG/ML (3ML) (FORTEO PEN 250 MCG/ML (3ML)) PEN, DISPOSA [Concomitant]
  3. CORDARONE [Concomitant]
  4. L-THYROXINE (L-THYROXINE) [Concomitant]
  5. MOPRAL (OMEPRAZOLE) CAPSULE [Concomitant]
  6. FENOFIBRATE [Concomitant]
  7. MINISINTROM (ACENOCOUMAROL) TABLET [Concomitant]
  8. DI-ANTALVIC [Concomitant]
  9. IDEOS [Concomitant]
  10. TILDIEM (DILITIAZEM HYDROCHLORIDE) TABLET [Concomitant]
  11. FUROSEMIDE [Concomitant]

REACTIONS (3)
  - CARDIAC FAILURE [None]
  - CHEST DISCOMFORT [None]
  - TACHYARRHYTHMIA [None]
